FAERS Safety Report 16103447 (Version 2)
Quarter: 2020Q3

REPORT INFORMATION
  Report Type: Spontaneous
  Country: US (occurrence: US)
  Receive Date: 20190322
  Receipt Date: 20200907
  Transmission Date: 20201102
  Serious: Yes (Death, Hospitalization)
  Sender: FDA-Public Use
  Company Number: US-JNJFOC-20190311367

PATIENT
  Age: 78 Year
  Sex: Male

DRUGS (1)
  1. XARELTO [Suspect]
     Active Substance: RIVAROXABAN
     Indication: PRODUCT USED FOR UNKNOWN INDICATION
     Dosage: STOP DATE: /MAY/2017
     Route: 048
     Dates: start: 201408

REACTIONS (3)
  - Myocardial ischaemia [Fatal]
  - Lower gastrointestinal haemorrhage [Recovering/Resolving]
  - Atrial fibrillation [Fatal]

NARRATIVE: CASE EVENT DATE: 20170510
